FAERS Safety Report 7057851-7 (Version None)
Quarter: 2010Q4

REPORT INFORMATION
  Report Type: 
  Country: None (occurrence: None)
  Receive Date: 20101022
  Receipt Date: 20101012
  Transmission Date: 20110411
  Serious: Yes (Other)
  Sender: FDA-Public Use
  Company Number: US-PFIZER INC-2010129829

PATIENT
  Sex: Female
  Weight: 90.72 kg

DRUGS (5)
  1. DILANTIN-125 [Suspect]
     Indication: CONVULSION
     Dosage: 200 MG, 2X/DAY
  2. KEPPRA [Concomitant]
     Dosage: UNK
  3. DEPAKOTE [Concomitant]
     Dosage: UNK
  4. KLONOPIN [Concomitant]
     Dosage: UNK
  5. RUFINAMIDE [Concomitant]
     Dosage: UNK

REACTIONS (2)
  - HAEMOGLOBIN DECREASED [None]
  - RENAL CELL CARCINOMA [None]
